FAERS Safety Report 6353978-3 (Version None)
Quarter: 2009Q3

REPORT INFORMATION
  Report Type: 
  Country: None (occurrence: None)
  Receive Date: 20090914
  Receipt Date: 20070606
  Transmission Date: 20100115
  Serious: Yes (Hospitalization, Other)
  Sender: FDA-Public Use
  Company Number: US-ASTRAZENECA-2007UW07233

PATIENT
  Age: 55 Year
  Sex: Male
  Weight: 96.6 kg

DRUGS (14)
  1. SEROQUEL [Suspect]
     Indication: INSOMNIA
     Route: 048
     Dates: start: 20010101
  2. SEROQUEL [Suspect]
     Indication: BIPOLAR DISORDER
     Route: 048
     Dates: start: 20010101
  3. SEROQUEL [Suspect]
     Indication: DEPRESSION
     Route: 048
     Dates: start: 20010101
  4. SEROQUEL [Suspect]
     Dosage: 25-300 MG
     Route: 048
     Dates: start: 20010410
  5. SEROQUEL [Suspect]
     Dosage: 25-300 MG
     Route: 048
     Dates: start: 20010410
  6. SEROQUEL [Suspect]
     Dosage: 25-300 MG
     Route: 048
     Dates: start: 20010410
  7. CLOZARIL [Concomitant]
     Dates: start: 20050101
  8. LEXAPRO [Concomitant]
  9. ENALAPRIL MALEATE [Concomitant]
  10. PLAVIX [Concomitant]
  11. LAMICTAL [Concomitant]
  12. AMBIEN [Concomitant]
     Dosage: 10-12.5 MG
     Dates: start: 20040219
  13. DEPAKOTE [Concomitant]
     Dosage: 500-1000 MG
     Dates: start: 20010117, end: 20060628
  14. LITHIUM CARBONATE [Concomitant]
     Indication: BIPOLAR DISORDER
     Dosage: 300-1200 MG
     Route: 048
     Dates: start: 19870515

REACTIONS (19)
  - ANGINA PECTORIS [None]
  - ARTERIOSCLEROSIS CORONARY ARTERY [None]
  - CARDIAC DISORDER [None]
  - CARDIAC FAILURE CONGESTIVE [None]
  - CHOLECYSTECTOMY [None]
  - CORONARY ARTERY STENOSIS [None]
  - DIABETES MELLITUS [None]
  - DIABETIC FOOT INFECTION [None]
  - DIABETIC NEUROPATHY [None]
  - DIABETIC ULCER [None]
  - DILATATION VENTRICULAR [None]
  - GLYCOSURIA [None]
  - HYPERGLYCAEMIA [None]
  - ISCHAEMIC CARDIOMYOPATHY [None]
  - MITRAL VALVE INCOMPETENCE [None]
  - MYOCARDIAL ISCHAEMIA [None]
  - NEUROPATHY PERIPHERAL [None]
  - TRICUSPID VALVE INCOMPETENCE [None]
  - VENTRICULAR DYSFUNCTION [None]
